FAERS Safety Report 6732542-8 (Version None)
Quarter: 2010Q2

REPORT INFORMATION
  Report Type: 
  Country: None (occurrence: None)
  Receive Date: 20100519
  Receipt Date: 20100511
  Transmission Date: 20101027
  Serious: Yes (Other)
  Sender: FDA-Public Use
  Company Number: FR-PFIZER INC-2010059466

PATIENT
  Sex: Female

DRUGS (2)
  1. LYRICA [Suspect]
     Indication: NEURALGIA
     Dosage: UNK, 1X/DAY
     Dates: start: 20100409, end: 20100501
  2. LYRICA [Suspect]
     Dosage: UNK, 2X/DAY
     Dates: start: 20100501

REACTIONS (3)
  - DISINHIBITION [None]
  - SOMNOLENCE [None]
  - VERTIGO [None]
